FAERS Safety Report 19802208 (Version 1)
Quarter: 2021Q3

REPORT INFORMATION
  Report Type: Spontaneous
  Country: BR (occurrence: BR)
  Receive Date: 20210908
  Receipt Date: 20210908
  Transmission Date: 20211014
  Serious: Yes (Hospitalization, Other)
  Sender: FDA-Public Use
  Company Number: BR-LUPIN PHARMACEUTICALS INC.-2021-16692

PATIENT
  Age: 67 Year
  Sex: Female
  Weight: 65 kg

DRUGS (1)
  1. MORPHINE [Suspect]
     Active Substance: MORPHINE
     Indication: PAIN PROPHYLAXIS
     Dosage: 40 MICROGRAM, DURATION: 2 HOURS AND 35 MINUTES
     Route: 037
     Dates: start: 2018, end: 2018

REACTIONS (1)
  - Respiratory depression [Unknown]

NARRATIVE: CASE EVENT DATE: 2018
